FAERS Safety Report 6528200-5 (Version None)
Quarter: 2010Q1

REPORT INFORMATION
  Report Type: 
  Country: None (occurrence: None)
  Receive Date: 20100106
  Receipt Date: 20091204
  Transmission Date: 20100710
  Serious: No
  Sender: FDA-Public Use
  Company Number: US-BAYER-200942177NA

PATIENT
  Age: 21 Year
  Sex: Female
  Weight: 48 kg

DRUGS (1)
  1. MIRENA [Suspect]
     Indication: CONTRACEPTION
     Dosage: CONTINUOUS DELIVERY
     Route: 015
     Dates: start: 20071211

REACTIONS (3)
  - CONSTIPATION [None]
  - LOSS OF LIBIDO [None]
  - MEDICAL DEVICE COMPLICATION [None]
